FAERS Safety Report 4619897-5 (Version None)
Quarter: 2005Q1

REPORT INFORMATION
  Report Type: 
  Country: None (occurrence: None)
  Receive Date: 20050321
  Receipt Date: 20050321
  Transmission Date: 20050727
  Serious: Yes (Death)
  Sender: FDA-Public Use
  Company Number: None

PATIENT
  Age: 22 Year
  Sex: Female

DRUGS (1)
  1. LIDOCAINE HYDROCHLORIDE AND TETRACAINE , COMPOUNDED [Suspect]
     Dosage: GEL

REACTIONS (7)
  - ANOXIC ENCEPHALOPATHY [None]
  - BRAIN DEATH [None]
  - COMA [None]
  - CONVULSION [None]
  - MEDICATION ERROR [None]
  - OVERDOSE [None]
  - RESPIRATORY ARREST [None]
